FAERS Safety Report 6443977-5 (Version None)
Quarter: 2009Q4

REPORT INFORMATION
  Report Type: 
  Country: None (occurrence: None)
  Receive Date: 20091117
  Receipt Date: 20091117
  Transmission Date: 20100525
  Serious: No
  Sender: FDA-Public Use
  Company Number: None

PATIENT
  Age: 48 Year
  Sex: Female
  Weight: 48.0813 kg

DRUGS (1)
  1. RECLAST [Suspect]
     Indication: OSTEOPOROSIS
     Dosage: TAKEN ONLY ONCE, LASTS ONE YEAR
     Dates: start: 20091106, end: 20091106

REACTIONS (4)
  - GINGIVAL PAIN [None]
  - GINGIVAL SWELLING [None]
  - HYPOPHAGIA [None]
  - PRODUCT QUALITY ISSUE [None]
